FAERS Safety Report 5613374-0 (Version None)
Quarter: 2008Q1

REPORT INFORMATION
  Report Type: 
  Country: None (occurrence: None)
  Receive Date: 20080129
  Receipt Date: 20080111
  Transmission Date: 20080703
  Serious: Yes (Other)
  Sender: FDA-Public Use
  Company Number: 2008EU000102

PATIENT
  Age: 16 Year

DRUGS (1)
  1. TACROLIMUS [Suspect]
     Indication: HEART TRANSPLANT

REACTIONS (2)
  - B-CELL LYMPHOMA STAGE III [None]
  - BONE MARROW FAILURE [None]
